FAERS Safety Report 4489550-X (Version None)
Quarter: 2004Q4

REPORT INFORMATION
  Report Type: 
  Country: None (occurrence: None)
  Receive Date: 20041026
  Receipt Date: 20041007
  Transmission Date: 20050328
  Serious: Yes (Hospitalization, Disabling, Other)
  Sender: FDA-Public Use
  Company Number: FR_041004968

PATIENT
  Age: 70 Year
  Sex: Female
  Weight: 60 kg

DRUGS (3)
  1. GEMZAR [Suspect]
     Indication: BREAST CANCER
     Dosage: 1500 MG/1 EVERY OTHER WEEK
     Dates: start: 20040506
  2. CAELYN (DOXORUBICIN HYDROCHLORIDE) [Concomitant]
  3. KYTRIL [Concomitant]

REACTIONS (4)
  - ALOPECIA [None]
  - DISEASE RECURRENCE [None]
  - DRUG INTERACTION [None]
  - GENERAL PHYSICAL HEALTH DETERIORATION [None]
